FAERS Safety Report 24181509 (Version 1)
Quarter: 2024Q3

REPORT INFORMATION
  Report Type: Spontaneous
  Country: CN (occurrence: CN)
  Receive Date: 20240807
  Receipt Date: 20240807
  Transmission Date: 20241017
  Serious: Yes (Death)
  Sender: SANDOZ
  Company Number: CN-SANDOZ-SDZ2024CN003569

PATIENT

DRUGS (1)
  1. VORICONAZOLE [Suspect]
     Active Substance: VORICONAZOLE
     Indication: Aspergillus infection
     Dosage: BID, 200-300 MG
     Route: 048

REACTIONS (7)
  - Treatment failure [Fatal]
  - Gastrointestinal disorder [Unknown]
  - Liver function test abnormal [Unknown]
  - Insomnia [Unknown]
  - Visual impairment [Unknown]
  - Vomiting [Unknown]
  - Nausea [Unknown]
